FAERS Safety Report 18845413 (Version 1)
Quarter: 2021Q1

REPORT INFORMATION
  Report Type: Report from Study
  Country: US (occurrence: US)
  Receive Date: 20210203
  Receipt Date: 20210203
  Transmission Date: 20210419
  Serious: No
  Sender: FDA-Public Use
  Company Number: US-EXELIXIS-CABO-20031695

PATIENT
  Age: 77 Year
  Sex: Male

DRUGS (4)
  1. CABOMETYX [Suspect]
     Active Substance: CABOZANTINIB S-MALATE
     Indication: METASTASES TO NERVOUS SYSTEM
  2. CABOMETYX [Suspect]
     Active Substance: CABOZANTINIB S-MALATE
     Indication: RENAL CANCER METASTATIC
     Dosage: 40 MG, QD
     Dates: start: 20200703, end: 20200704
  3. CABOMETYX [Suspect]
     Active Substance: CABOZANTINIB S-MALATE
     Indication: METASTASES TO LUNG
     Dosage: 40 MG, QD
     Dates: start: 20200722, end: 20200918
  4. CABOMETYX [Suspect]
     Active Substance: CABOZANTINIB S-MALATE
     Indication: METASTASES TO SPINAL CORD

REACTIONS (8)
  - Nausea [Recovered/Resolved]
  - Renal impairment [Unknown]
  - Skin ulcer [Unknown]
  - Weight decreased [Unknown]
  - Palmar-plantar erythrodysaesthesia syndrome [Unknown]
  - Faecaloma [Recovered/Resolved]
  - Diarrhoea [Recovered/Resolved]
  - Blood pressure increased [Unknown]

NARRATIVE: CASE EVENT DATE: 202007
